FAERS Safety Report 6316462-9 (Version None)
Quarter: 2009Q3

REPORT INFORMATION
  Report Type: 
  Country: None (occurrence: None)
  Receive Date: 20090819
  Receipt Date: 20090819
  Transmission Date: 20100115
  Serious: Yes (Other)
  Sender: FDA-Public Use
  Company Number: None

PATIENT
  Age: 31 Year
  Sex: Female
  Weight: 62.5964 kg

DRUGS (1)
  1. CYMBALTA [Suspect]
     Indication: DEPRESSION
     Dosage: 60MG ONCE DAILY PO
     Route: 048
     Dates: start: 20080118, end: 20090818

REACTIONS (14)
  - APATHY [None]
  - CONSTIPATION [None]
  - CRYING [None]
  - FATIGUE [None]
  - HEADACHE [None]
  - HYPOAESTHESIA [None]
  - INSOMNIA [None]
  - IRRITABILITY [None]
  - PRURITUS [None]
  - PYREXIA [None]
  - SUICIDAL IDEATION [None]
  - TINNITUS [None]
  - URTICARIA [None]
  - YAWNING [None]
